FAERS Safety Report 12944690 (Version 1)
Quarter: 2016Q4

REPORT INFORMATION
  Report Type: Report from Study
  Country: CA (occurrence: CA)
  Receive Date: 20161116
  Receipt Date: 20161116
  Transmission Date: 20170207
  Serious: Yes (Hospitalization, Other)
  Sender: FDA-Public Use
  Company Number: CA-AMGEN-CANSL2016158591

PATIENT
  Age: 68 Year
  Sex: Female

DRUGS (13)
  1. ASACOL [Concomitant]
     Active Substance: MESALAMINE
  2. IRON [Concomitant]
     Active Substance: IRON
  3. LOSAC [Concomitant]
     Active Substance: OMEPRAZOLE
  4. IMURAN [Concomitant]
     Active Substance: AZATHIOPRINE
  5. SLOW-K [Concomitant]
     Active Substance: POTASSIUM CHLORIDE
  6. FUROSEMIDE. [Concomitant]
     Active Substance: FUROSEMIDE
  7. VENTOLIN [Concomitant]
     Active Substance: ALBUTEROL SULFATE
     Indication: ASTHMA
  8. MANURAX [Concomitant]
  9. CALCIUM [Concomitant]
     Active Substance: CALCIUM
  10. OMEGA 3 [Concomitant]
     Active Substance: OMEGA-3 FATTY ACIDS
  11. PROLIA [Suspect]
     Active Substance: DENOSUMAB
     Indication: OSTEOPOROSIS
     Dosage: UNK
     Route: 065
     Dates: start: 2014
  12. VITAMIN D [Concomitant]
     Active Substance: CHOLECALCIFEROL
  13. FLOVENT [Concomitant]
     Active Substance: FLUTICASONE PROPIONATE
     Indication: ASTHMA
     Dosage: 250 MU, UNK
     Dates: start: 20150608

REACTIONS (3)
  - Weight increased [Unknown]
  - Cerebral disorder [Unknown]
  - Breast cancer [Unknown]

NARRATIVE: CASE EVENT DATE: 20160809
